FAERS Safety Report 4292075-8 (Version None)
Quarter: 2004Q1

REPORT INFORMATION
  Report Type: 
  Country: None (occurrence: None)
  Receive Date: 20040126
  Receipt Date: 20031119
  Transmission Date: 20041129
  Serious: No
  Sender: FDA-Public Use
  Company Number: USA031152950

PATIENT
  Age: 57 Year
  Sex: Female
  Weight: 71 kg

DRUGS (7)
  1. FORTEO [Suspect]
     Indication: OSTEOPOROSIS
     Dates: start: 20031001
  2. VITAMIN B-12 [Concomitant]
  3. IRON [Concomitant]
  4. SYNTHROID [Concomitant]
  5. PAXIL [Concomitant]
  6. XANAX [Concomitant]
  7. VICODIN [Concomitant]

REACTIONS (6)
  - CONSTIPATION [None]
  - HOT FLUSH [None]
  - INJECTION SITE ERYTHEMA [None]
  - INJECTION SITE PAIN [None]
  - PAIN [None]
  - PAIN IN EXTREMITY [None]
